FAERS Safety Report 8440679-0 (Version None)
Quarter: 2012Q2

REPORT INFORMATION
  Report Type: 
  Country: None (occurrence: None)
  Receive Date: 20120615
  Receipt Date: 20120606
  Transmission Date: 20120825
  Serious: Yes (Hospitalization)
  Sender: FDA-Public Use
  Company Number: US-BAYER-2012-020025

PATIENT
  Age: 27 Year
  Sex: Female
  Weight: 73.469 kg

DRUGS (25)
  1. DAYPRO [Concomitant]
     Dosage: 600 MG, TID
     Dates: start: 20071112
  2. NORTRIPTYLINE HYDROCHLORIDE [Concomitant]
     Dosage: 25 MG, UNK
     Dates: start: 20070829
  3. METHYLPREDNISOLONE [Concomitant]
     Dosage: 4 MG, PAK
     Dates: start: 20070929
  4. METHOCARBAMOL [Concomitant]
     Dosage: 750 MG, UNK
     Dates: start: 20070929, end: 20071031
  5. NEXIUM [Concomitant]
     Dosage: 20 MG, DAILY
     Dates: start: 20071112
  6. ZOLOFT [Concomitant]
     Dosage: 100 MG, QD
     Route: 048
     Dates: start: 20071112
  7. YASMIN [Suspect]
     Dosage: UNK
     Dates: start: 19980101, end: 20060101
  8. HYDROCODONE BITARTRATE AND ACETAMINOPHEN [Concomitant]
     Dosage: 7.5 MG/ 500 MG
     Dates: start: 20071017, end: 20071114
  9. CHANTIX [Concomitant]
     Dosage: UNK
     Dates: start: 20070918
  10. XANAX [Concomitant]
     Indication: ANXIETY
     Dosage: 0.5 MG-1 MG, TID PRF
     Route: 048
     Dates: start: 19990101
  11. ZANAFLEX [Concomitant]
     Dosage: 4 MG TAB/ 0.5-1, TID
     Dates: start: 20071112
  12. LEXAPRO [Concomitant]
     Dosage: 10 MG, QAM
     Route: 048
     Dates: start: 20070918
  13. ATUSS HD [Concomitant]
     Dosage: UNK
     Dates: start: 20070918
  14. XANAX [Concomitant]
     Indication: CONVULSION
  15. HYDROCODONE W/IBUPROFEN [Concomitant]
     Dosage: 7.5-200 MG
     Dates: start: 20070929, end: 20071031
  16. VICODIN ES [Concomitant]
     Indication: NECK PAIN
     Dosage: 7.5-750 MG, 1 Q 6 HR PRN
     Route: 048
     Dates: start: 20070921, end: 20071112
  17. YAZ [Suspect]
     Indication: PRODUCT USED FOR UNKNOWN INDICATION
     Dosage: UNK
     Dates: start: 19980101, end: 20060101
  18. CEFDINIR [Concomitant]
     Dosage: 300 MG, BID
     Route: 048
     Dates: start: 20070918
  19. OMEPRAZOLE [Concomitant]
     Dosage: 20 MG, UNK
     Dates: start: 20071110
  20. ZANAFLEX [Concomitant]
     Indication: NECK PAIN
     Dosage: 4 MG TAB/ 0.5-1 TID
     Route: 048
     Dates: start: 20070928
  21. LORATADINE [Concomitant]
     Dosage: 10 MG, UNK
     Dates: start: 20070829
  22. NORFLEX [Concomitant]
     Dosage: 100 MG, BID
     Dates: start: 20070921
  23. ZOLPIDEM [Concomitant]
     Dosage: 10 MG, HS
     Route: 048
     Dates: start: 20070913, end: 20071019
  24. DAYPRO [Concomitant]
     Indication: NECK PAIN
     Dosage: 600 MG, BID
     Route: 048
     Dates: start: 20070928
  25. MIDRIN [Concomitant]
     Indication: HEADACHE
     Dosage: 325-65-100 MG, QID PRN
     Dates: start: 20071015, end: 20071112

REACTIONS (3)
  - CHOLECYSTITIS CHRONIC [None]
  - PAIN [None]
  - INJURY [None]
